FAERS Safety Report 23089048 (Version 2)
Quarter: 2023Q4

REPORT INFORMATION
  Report Type: Spontaneous
  Country: IT (occurrence: IT)
  Receive Date: 20231020
  Receipt Date: 20231106
  Transmission Date: 20240109
  Serious: Yes (Hospitalization)
  Sender: FDA-Public Use
  Company Number: None

PATIENT
  Age: 70 Year
  Sex: Female
  Weight: 53 kg

DRUGS (2)
  1. CARBOPLATIN [Interacting]
     Active Substance: CARBOPLATIN
     Indication: Ovarian neoplasm
     Dosage: AUC 1.7 G 1, 8, 15 OF A 21-DAY CYCLE
     Route: 042
     Dates: start: 20230221, end: 20230504
  2. PACLITAXEL [Interacting]
     Active Substance: PACLITAXEL
     Indication: Ovarian neoplasm
     Dosage: 91.2 MG, WEEKLY
     Route: 042
     Dates: start: 20230221, end: 20230504

REACTIONS (7)
  - Tachycardia [Recovered/Resolved]
  - Dyspnoea [Recovered/Resolved]
  - Nausea [Recovered/Resolved]
  - Rash [Recovered/Resolved]
  - Vomiting [Recovered/Resolved]
  - Vertigo [Recovered/Resolved]
  - Drug interaction [Recovered/Resolved]

NARRATIVE: CASE EVENT DATE: 20230504
